FAERS Safety Report 23474767 (Version 1)
Quarter: 2024Q1

REPORT INFORMATION
  Report Type: Spontaneous
  Country: AU (occurrence: AU)
  Receive Date: 20240204
  Receipt Date: 20240204
  Transmission Date: 20240410
  Serious: Yes (Death)
  Sender: FDA-Public Use
  Company Number: AU-IPSEN Group, Research and Development-2023-14935

PATIENT
  Sex: Male
  Weight: 80 kg

DRUGS (1)
  1. CABOMETYX [Suspect]
     Active Substance: CABOZANTINIB S-MALATE
     Indication: Product used for unknown indication
     Dosage: 60 MG
     Route: 065
     Dates: end: 20230803

REACTIONS (2)
  - Malignant neoplasm progression [Fatal]
  - Fatigue [Unknown]
